FAERS Safety Report 10086366 (Version 1)
Quarter: 2014Q2

REPORT INFORMATION
  Report Type: Spontaneous
  Country: IT (occurrence: IT)
  Receive Date: 20140418
  Receipt Date: 20140418
  Transmission Date: 20141212
  Serious: Yes (Hospitalization)
  Sender: FDA-Public Use
  Company Number: IT-PFIZER INC-2014108707

PATIENT
  Age: 48 Year
  Sex: Female

DRUGS (2)
  1. ZELDOX [Suspect]
     Dosage: 560 MG, DAILY
     Route: 048
     Dates: start: 20140116, end: 20140116
  2. TRIAZOLAM [Suspect]
     Dosage: 3 MG, DAILY
     Route: 048
     Dates: start: 20140116, end: 20140116

REACTIONS (3)
  - Intentional overdose [Unknown]
  - Intentional self-injury [Unknown]
  - Sopor [Recovering/Resolving]
